FAERS Safety Report 16125790 (Version 1)
Quarter: 2019Q1

REPORT INFORMATION
  Report Type: Spontaneous
  Country: FR (occurrence: FR)
  Receive Date: 20190328
  Receipt Date: 20190328
  Transmission Date: 20190418
  Serious: Yes (Other)
  Sender: FDA-Public Use
  Company Number: FR-AUROBINDO-AUR-APL-2019-016109

PATIENT

DRUGS (4)
  1. IBUPROFEN. [Suspect]
     Active Substance: IBUPROFEN
     Indication: PAIN
     Dosage: NON RENSEIGN?E
     Route: 048
     Dates: start: 20190220, end: 20190220
  2. MISOONE [Suspect]
     Active Substance: MISOPROSTOL
     Indication: ABORTION INDUCED
     Dosage: 1 UNK
     Route: 048
     Dates: start: 20190220, end: 20190220
  3. VOGALENE [Suspect]
     Active Substance: METOPIMAZINE
     Indication: PAIN
     Dosage: NON RENSEIGN?E
     Route: 048
     Dates: start: 20190220, end: 20190220
  4. MISOONE [Suspect]
     Active Substance: MISOPROSTOL
     Dosage: UNK
     Route: 002
     Dates: start: 20190220, end: 20190220

REACTIONS (6)
  - Tongue oedema [Recovered/Resolved]
  - Oropharyngeal oedema [Recovered/Resolved]
  - Dysphagia [Recovered/Resolved]
  - Angioedema [Recovering/Resolving]
  - Incorrect dose administered [Unknown]
  - Incorrect route of product administration [Unknown]

NARRATIVE: CASE EVENT DATE: 20190220
